FAERS Safety Report 5326500-8 (Version None)
Quarter: 2007Q2

REPORT INFORMATION
  Report Type: 
  Country: None (occurrence: None)
  Receive Date: 20070510
  Receipt Date: 20070504
  Transmission Date: 20071010
  Serious: Yes (Other)
  Sender: FDA-Public Use
  Company Number: SPV1-2007-02184

PATIENT
  Age: 10 Year
  Sex: Female
  Weight: 38.5 kg

DRUGS (4)
  1. ADDERALL XR 10 [Suspect]
     Indication: ATTENTION DEFICIT/HYPERACTIVITY DISORDER
     Dates: start: 20040101
  2. ADDERALL XR 10 [Suspect]
     Dosage: 40MG, 1XDAY,QD
  3. WELLBUTRIN [Concomitant]
  4. STRATTERA [Concomitant]

REACTIONS (4)
  - CARDIOMEGALY [None]
  - DISTURBANCE IN ATTENTION [None]
  - DRUG EFFECT DECREASED [None]
  - INCORRECT DOSE ADMINISTERED [None]
